FAERS Safety Report 8600582 (Version 5)
Quarter: 2012Q4

REPORT INFORMATION
  Report Type: 
  Country: AU (occurrence: AU)
  Receive Date: 20120606
  Receipt Date: 20121108
  Transmission Date: 20130627
  Serious: Yes (Hospitalization)
  Sender: FDA-Public Use
  Company Number: PHHY2012AU046332

PATIENT
  Age: 45 Year
  Sex: Female

DRUGS (2)
  1. CLOZARIL [Suspect]
     Dosage: 600 mg, UNK
     Route: 048
     Dates: start: 20050303, end: 20121024
  2. RISPERIDONE [Concomitant]

REACTIONS (7)
  - Breast cancer [Unknown]
  - Neoplasm malignant [Unknown]
  - Febrile neutropenia [Unknown]
  - Neutrophil count decreased [Recovered/Resolved]
  - White blood cell count decreased [Recovered/Resolved]
  - White blood cell count increased [Recovered/Resolved]
  - Neutrophil count increased [Recovered/Resolved]
